FAERS Safety Report 5945011-X (Version None)
Quarter: 2008Q4

REPORT INFORMATION
  Report Type: 
  Country: None (occurrence: None)
  Receive Date: 20081107
  Receipt Date: 20081030
  Transmission Date: 20090506
  Serious: Yes (Death, Hospitalization)
  Sender: FDA-Public Use
  Company Number: US-MERCK-0707USA03279

PATIENT
  Age: 80 Year
  Sex: Female
  Weight: 68 kg

DRUGS (7)
  1. FOSAMAX [Suspect]
     Indication: OSTEOPOROSIS
     Route: 048
     Dates: start: 20010301, end: 20010901
  2. FOSAMAX [Suspect]
     Route: 048
     Dates: end: 20060906
  3. ACTONEL [Concomitant]
     Indication: OSTEOPOROSIS
     Route: 065
     Dates: start: 20010901, end: 20050901
  4. SYNTHROID [Concomitant]
     Indication: HYPOTHYROIDISM
     Route: 065
     Dates: start: 19990101
  5. HYDROCHLOROTHIAZIDE [Concomitant]
     Indication: HYPERTENSION
     Route: 065
     Dates: start: 19990101
  6. HYDROCHLOROTHIAZIDE [Concomitant]
     Indication: FLUID RETENTION
     Route: 065
     Dates: start: 19990101
  7. ENALAPRIL MALEATE [Concomitant]
     Indication: HYPERTENSION
     Route: 065
     Dates: start: 20050101

REACTIONS (18)
  - ARTERIOSCLEROSIS CORONARY ARTERY [None]
  - ATELECTASIS [None]
  - CAROTID ARTERY DISEASE [None]
  - DEATH [None]
  - EYE PENETRATION [None]
  - FALL [None]
  - MYALGIA [None]
  - NAUSEA [None]
  - OSTEOMYELITIS [None]
  - OSTEONECROSIS [None]
  - PANCOAST'S TUMOUR [None]
  - PARATRACHEAL LYMPHADENOPATHY [None]
  - PERIPHERAL VASCULAR DISORDER [None]
  - RENAL FAILURE [None]
  - SYNCOPE [None]
  - TOOTH DISORDER [None]
  - TRAUMATIC ULCER [None]
  - UPPER LIMB FRACTURE [None]
